FAERS Safety Report 4617176-3 (Version None)
Quarter: 2005Q1

REPORT INFORMATION
  Report Type: 
  Country: None (occurrence: None)
  Receive Date: 20050323
  Receipt Date: 20050316
  Transmission Date: 20050727
  Serious: Yes (Other)
  Sender: FDA-Public Use
  Company Number: GB-GLAXOSMITHKLINE-B0374974A

PATIENT
  Age: 46 Year
  Sex: Male
  Weight: 88 kg

DRUGS (5)
  1. ZYBAN [Suspect]
     Dosage: 150MG UNKNOWN
     Route: 048
     Dates: start: 20050131, end: 20050206
  2. ATORVASTATIN CALCIUM [Concomitant]
     Dosage: 40MG PER DAY
     Route: 048
  3. ASPIRIN [Concomitant]
     Dosage: 300MG PER DAY
     Route: 048
  4. RAMIPRIL [Concomitant]
     Dosage: 5MG PER DAY
     Route: 048
  5. CLOPIDOGREL [Concomitant]
     Dosage: 75MG PER DAY
     Route: 048

REACTIONS (2)
  - ANGER [None]
  - INJURY [None]
